FAERS Safety Report 24647461 (Version 1)
Quarter: 2024Q4

REPORT INFORMATION
  Report Type: Spontaneous
  Country: MX (occurrence: MX)
  Receive Date: 20241121
  Receipt Date: 20241121
  Transmission Date: 20250115
  Serious: Yes (Other)
  Sender: AMGEN
  Company Number: MX-AMGEN-MEXSP2024225442

PATIENT
  Weight: 2.285 kg

DRUGS (1)
  1. PEGFILGRASTIM [Suspect]
     Active Substance: PEGFILGRASTIM
     Indication: Exposure during pregnancy
     Dosage: UNK
     Route: 064

REACTIONS (5)
  - Colitis [Recovered/Resolved]
  - Foetal exposure during pregnancy [Unknown]
  - Cardiac murmur [Recovered/Resolved]
  - Gastrooesophageal reflux disease [Recovered/Resolved]
  - Iron deficiency anaemia [Recovered/Resolved]
